FAERS Safety Report 14226236 (Version 4)
Quarter: 2018Q1

REPORT INFORMATION
  Report Type: Spontaneous
  Country: JP (occurrence: JP)
  Receive Date: 20171127
  Receipt Date: 20180105
  Transmission Date: 20180508
  Serious: Yes (Other)
  Sender: FDA-Public Use
  Company Number: JP-PFIZER INC-2017507591

PATIENT
  Sex: Female

DRUGS (5)
  1. GLUCAGON. [Concomitant]
     Active Substance: GLUCAGON
     Indication: HYPOGLYCAEMIA
     Dosage: UNK
  2. GASTROGRAFIN [Concomitant]
     Active Substance: DIATRIZOATE MEGLUMINE\DIATRIZOATE SODIUM
     Indication: MECONIUM PLUG SYNDROME
     Dosage: UNK
     Route: 054
  3. SIROLIMUS. [Suspect]
     Active Substance: SIROLIMUS
     Indication: HYPOGLYCAEMIA
     Dosage: UNK
     Route: 048
  4. OCTREOTIDE ACETATE. [Concomitant]
     Active Substance: OCTREOTIDE ACETATE
     Indication: HYPOGLYCAEMIA
     Dosage: UNK
  5. DIAZOXIDE [Concomitant]
     Active Substance: DIAZOXIDE
     Indication: HYPOGLYCAEMIA
     Dosage: UNK

REACTIONS (9)
  - Off label use [Unknown]
  - Respiratory disorder [Unknown]
  - Infection [Unknown]
  - C-reactive protein increased [Unknown]
  - Retroperitoneal abscess [Unknown]
  - Platelet count decreased [Unknown]
  - General physical health deterioration [Unknown]
  - Hepatoblastoma [Unknown]
  - Hypertrophy [Unknown]
